FAERS Safety Report 19417733 (Version 2)
Quarter: 2021Q2

REPORT INFORMATION
  Report Type: Spontaneous
  Country: DE (occurrence: DE)
  Receive Date: 20210615
  Receipt Date: 20210621
  Transmission Date: 20210717
  Serious: Yes (Hospitalization)
  Sender: FDA-Public Use
  Company Number: DE-TEVA-2021-DE-1921416

PATIENT
  Age: 82 Year
  Sex: Male

DRUGS (14)
  1. TAMSULOSIN [Concomitant]
     Active Substance: TAMSULOSIN
     Dosage: .4 MILLIGRAM DAILY; 1?0?0?0
     Route: 048
  2. PANTOPRAZOL [Concomitant]
     Active Substance: PANTOPRAZOLE SODIUM
     Dosage: 40 MILLIGRAM DAILY; 0?0?1?0
     Route: 048
  3. RISPERIDON [Concomitant]
     Active Substance: RISPERIDONE
     Dosage: 1 MG, 0.5?0?1?0
     Route: 048
  4. TORASEMID [Suspect]
     Active Substance: TORSEMIDE
     Dosage: 20 MILLIGRAM DAILY; 1?1?0?0
     Route: 048
  5. SIMVASTATIN. [Concomitant]
     Active Substance: SIMVASTATIN
     Dosage: 40 MILLIGRAM DAILY; 0?0?1?0
     Route: 048
  6. RISPERIDON [Concomitant]
     Active Substance: RISPERIDONE
     Dosage: IF NECESSARY
     Route: 048
  7. SPIRONOLACTON [Suspect]
     Active Substance: SPIRONOLACTONE
     Dosage: 50 MILLIGRAM DAILY; 1?0?0?0
     Route: 048
  8. MOVICOL BEUTEL [Concomitant]
     Active Substance: POLYETHYLENE GLYCOL 3350\POTASSIUM CHLORIDE\SODIUM BICARBONATE\SODIUM CHLORIDE
     Dosage: 10 MILLIGRAM DAILY; 1?0?0?0, POWDER TO MIX
     Route: 048
  9. MELPERON [Concomitant]
     Active Substance: MELPERONE
     Dosage: 2 DOSAGE FORMS DAILY; 25 MG, 0?0?0?2
     Route: 048
  10. MELPERON [Concomitant]
     Active Substance: MELPERONE
     Dosage: 25 MG, 1X IF NECESSARY, TABLETS
     Route: 048
  11. BENSERAZID/LEVODOPA [Concomitant]
     Active Substance: BENSERAZIDE\LEVODOPA
     Dosage: 2 DOSAGE FORMS DAILY; 12.5|50 MG, 1?0?1?0
     Route: 048
  12. TILIDINE/NALOXONE [Concomitant]
     Active Substance: NALOXONE HYDROCHLORIDE\TILIDINE HYDROCHLORIDE
     Dosage: 2 DOSAGE FORMS DAILY; 8|100 MG, 1?0?1?0,
     Route: 048
  13. METAMIZOL [Concomitant]
     Active Substance: METAMIZOLE SODIUM
     Dosage: 2000 MILLIGRAM DAILY; 1?1?1?1
     Route: 048
  14. RAMIPRIL?CT 2,5MG [Suspect]
     Active Substance: RAMIPRIL
     Dosage: 2.5 MILLIGRAM DAILY; 1?0?0?0
     Route: 048

REACTIONS (6)
  - Diarrhoea [Unknown]
  - General physical health deterioration [Unknown]
  - Electrolyte imbalance [Unknown]
  - Dehydration [Unknown]
  - Hypotension [Unknown]
  - Renal impairment [Unknown]
